FAERS Safety Report 19043628 (Version 1)
Quarter: 2021Q1

REPORT INFORMATION
  Report Type: Spontaneous
  Country: CA (occurrence: CA)
  Receive Date: 20210323
  Receipt Date: 20210323
  Transmission Date: 20210420
  Serious: Yes (Other)
  Sender: FDA-Public Use
  Company Number: CA-AMNEAL PHARMACEUTICALS-2021-AMRX-00987

PATIENT
  Age: 36 Year

DRUGS (1)
  1. METHITEST [Suspect]
     Active Substance: METHYLTESTOSTERONE
     Indication: HORMONE THERAPY
     Dosage: UNK
     Route: 065

REACTIONS (1)
  - Ovarian endometrioid carcinoma [Unknown]
